FAERS Safety Report 7904986-X (Version None)
Quarter: 2011Q4

REPORT INFORMATION
  Report Type: 
  Country: None (occurrence: None)
  Receive Date: 20111109
  Receipt Date: 20111103
  Transmission Date: 20120403
  Serious: Yes (Death)
  Sender: FDA-Public Use
  Company Number: PHEH2011US07893

PATIENT
  Sex: Female

DRUGS (4)
  1. DURAGESIC-100 [Concomitant]
     Dosage: 7.5 MG, Q72H
     Route: 062
  2. VICODIN ES [Concomitant]
     Dosage: 7.5(HYDROCODONE BITARTARATE)+250(PARACETAMOL)
     Route: 048
  3. FAMPRIDINE [Concomitant]
  4. GILENYA [Suspect]
     Dosage: 0.5 MG, QD
     Route: 048
     Dates: start: 20110405

REACTIONS (1)
  - DEATH [None]
